FAERS Safety Report 25578364 (Version 2)
Quarter: 2025Q3

REPORT INFORMATION
  Report Type: Report from Study
  Country: JP (occurrence: JP)
  Receive Date: 20250718
  Receipt Date: 20250723
  Transmission Date: 20251021
  Serious: Yes (Other)
  Sender: Haleon PLC
  Company Number: JP-HALEON-2252844

PATIENT
  Age: 29 Year
  Sex: Male
  Weight: 91 kg

DRUGS (2)
  1. ALLI [Suspect]
     Active Substance: ORLISTAT
     Indication: Product used for unknown indication
     Route: 048
     Dates: start: 20250522
  2. ALLI [Suspect]
     Active Substance: ORLISTAT
     Dosage: SINCE THE AMOUNT OF FOOD EATEN WAS SMALL AND THE DIET CONTAINED VERY LITTLE FAT, THE DOSAGE WAS R...
     Route: 048
     Dates: end: 20250716

REACTIONS (4)
  - Haematochezia [Recovered/Resolved]
  - Cold sweat [Recovered/Resolved]
  - Nausea [Recovered/Resolved]
  - Wrong patient received product [Unknown]

NARRATIVE: CASE EVENT DATE: 20250522
